FAERS Safety Report 13299525 (Version 2)
Quarter: 2017Q2

REPORT INFORMATION
  Report Type: Spontaneous
  Country: JP (occurrence: JP)
  Receive Date: 20170306
  Receipt Date: 20170413
  Transmission Date: 20170830
  Serious: Yes (Other)
  Sender: FDA-Public Use
  Company Number: JP-PFIZER INC-2017029622

PATIENT
  Age: 18 Year
  Sex: Female

DRUGS (18)
  1. PHENOBAL [Concomitant]
     Active Substance: PHENOBARBITAL
     Indication: EPILEPSY
     Dosage: 0.5 G, 1X/DAY
     Route: 048
  2. LUNABELL [Concomitant]
     Active Substance: ETHINYL ESTRADIOL\NORETHINDRONE
     Indication: MENSTRUATION IRREGULAR
     Dosage: 1 DF, 1X/DAY
     Route: 048
     Dates: start: 20141111, end: 20150427
  3. FAD /00519101/ [Concomitant]
     Dosage: 20 MG, 2X/DAY
     Route: 048
     Dates: start: 20150525, end: 20150927
  4. LAC B [Concomitant]
     Active Substance: BIFIDOBACTERIUM SPP.
     Dosage: 1 DF, 2X/DAY
     Route: 048
     Dates: start: 20150706, end: 20160821
  5. FREWELL [Concomitant]
     Indication: MENSTRUATION IRREGULAR
     Dosage: 1 DF, 1X/DAY
     Route: 048
     Dates: start: 20160502
  6. LORATADINE. [Concomitant]
     Active Substance: LORATADINE
     Dosage: 10 MG, 2X/DAY
     Route: 048
     Dates: start: 20150803, end: 20160821
  7. LAC B [Concomitant]
     Active Substance: BIFIDOBACTERIUM SPP.
     Dosage: 1 DF, 2X/DAY
     Route: 048
     Dates: start: 20160912
  8. ATARAX-P 25MG [Suspect]
     Active Substance: HYDROXYZINE HYDROCHLORIDE
     Dosage: 25 MG, 2X/DAY
     Route: 048
     Dates: start: 20161212, end: 20170212
  9. EXCEGRAN [Concomitant]
     Active Substance: ZONISAMIDE
     Dosage: 1.25 G, 2X/DAY
     Route: 048
  10. FAD /00519101/ [Concomitant]
     Dosage: 10 MG, 1X/DAY
     Route: 048
     Dates: start: 20160822
  11. LORATADINE. [Concomitant]
     Active Substance: LORATADINE
     Dosage: 10 MG, 1X/DAY
     Route: 048
     Dates: start: 20160822, end: 20161211
  12. LAMICTAL [Concomitant]
     Active Substance: LAMOTRIGINE
     Indication: EPILEPSY
     Dosage: 50 MG, 2X/DAY
     Route: 048
  13. DIAPP [Concomitant]
     Active Substance: DIAZEPAM
     Indication: EPILEPSY
     Dosage: UNK
     Route: 054
     Dates: start: 20160604
  14. FAD /00519101/ [Concomitant]
     Dosage: 10 MG, 2X/DAY
     Route: 048
     Dates: start: 20150928, end: 20160821
  15. CABASER [Concomitant]
     Active Substance: CABERGOLINE
     Indication: MENSTRUATION IRREGULAR
     Dosage: 0.25 MG, WEEKLY
     Route: 048
     Dates: start: 20141111
  16. MYSTAN [Concomitant]
     Active Substance: CLOBAZAM
     Indication: EPILEPSY
     Dosage: 15 MG, 2X/DAY
     Route: 048
  17. LUNABELL [Concomitant]
     Active Substance: ETHINYL ESTRADIOL\NORETHINDRONE
     Dosage: 1 DF, 1X/DAY
     Route: 048
     Dates: start: 20150928, end: 20160501
  18. ORENGEDOKUTO [Concomitant]
     Active Substance: HERBALS
     Dosage: 3 DF, 2X/DAY
     Route: 048
     Dates: start: 20141114

REACTIONS (3)
  - Epilepsy [Unknown]
  - Condition aggravated [Unknown]
  - Seizure [Unknown]
